FAERS Safety Report 6467970-1 (Version None)
Quarter: 2009Q4

REPORT INFORMATION
  Report Type: 
  Country: None (occurrence: None)
  Receive Date: 20091127
  Receipt Date: 20091112
  Transmission Date: 20100525
  Serious: Yes (Other)
  Sender: FDA-Public Use
  Company Number: 2009003478

PATIENT
  Age: 55 Year
  Sex: Female

DRUGS (1)
  1. ERLOTINIB HYDROCHLORIDE [Suspect]
     Indication: NON-SMALL CELL LUNG CANCER
     Dosage: 150 MG, QD, ORAL
     Route: 048
     Dates: start: 20050718, end: 20080101

REACTIONS (7)
  - DIARRHOEA [None]
  - ERYTHEMA [None]
  - METASTASES TO LUNG [None]
  - PLEURAL EFFUSION [None]
  - PLEURAL FIBROSIS [None]
  - RADIATION FIBROSIS [None]
  - RASH PAPULAR [None]
